FAERS Safety Report 5447582-9 (Version None)
Quarter: 2007Q3

REPORT INFORMATION
  Report Type: 
  Country: None (occurrence: None)
  Receive Date: 20070905
  Receipt Date: 20070905
  Transmission Date: 20080115
  Serious: Yes (Death, Hospitalization)
  Sender: FDA-Public Use
  Company Number: None

PATIENT
  Age: 80 Year
  Sex: Female
  Weight: 69 kg

DRUGS (2)
  1. OXALIPLATIN [Suspect]
     Indication: PANCREATIC CARCINOMA
     Dates: start: 20070724, end: 20070806
  2. GEMCITABINE HCL [Suspect]
     Indication: PANCREATIC CARCINOMA
     Dates: start: 20070724, end: 20070806

REACTIONS (8)
  - ASCITES [None]
  - ASTHENIA [None]
  - DISEASE PROGRESSION [None]
  - FAILURE TO THRIVE [None]
  - INFECTION [None]
  - METASTASES TO LIVER [None]
  - PYREXIA [None]
  - URINARY TRACT INFECTION [None]
